FAERS Safety Report 4859695-0 (Version None)
Quarter: 2005Q4

REPORT INFORMATION
  Report Type: 
  Country: None (occurrence: None)
  Receive Date: 20051215
  Receipt Date: 20051215
  Transmission Date: 20060501
  Serious: Yes (Death)
  Sender: FDA-Public Use
  Company Number: None

PATIENT
  Sex: Female
  Weight: 108 kg

DRUGS (1)
  1. GEMCITABINE [Suspect]
     Indication: PANCREATIC CARCINOMA
     Dosage: SEE IMAGE
     Route: 042
     Dates: start: 20051102

REACTIONS (18)
  - ABASIA [None]
  - ADRENAL MASS [None]
  - ASTHENIA [None]
  - DYSSTASIA [None]
  - HEPATIC MASS [None]
  - LYMPHADENOPATHY [None]
  - MALIGNANT NEOPLASM PROGRESSION [None]
  - MUSCLE MASS [None]
  - PANCREATIC FISTULA [None]
  - PANCREATIC MASS [None]
  - PANCREATIC NECROSIS [None]
  - PLEURAL EFFUSION [None]
  - PNEUMONIA [None]
  - PNEUMOTHORAX [None]
  - PULMONARY OEDEMA [None]
  - SEPSIS [None]
  - THROMBOCYTOPENIA [None]
  - TROPONIN INCREASED [None]
